FAERS Safety Report 8990671 (Version 1)
Quarter: 2012Q4

REPORT INFORMATION
  Report Type: 
  Country: US (occurrence: US)
  Receive Date: 20121228
  Receipt Date: 20121228
  Transmission Date: 20130627
  Serious: Yes (Hospitalization, Other)
  Sender: FDA-Public Use
  Company Number: US-SANOFI-AVENTIS-2012SA093678

PATIENT
  Age: 69 Year
  Sex: Female

DRUGS (1)
  1. LANTUS [Suspect]
     Dosage: Dose:110 unit(s)
     Route: 058
     Dates: start: 2004

REACTIONS (2)
  - Cardiac operation [Unknown]
  - Knee operation [Unknown]
